FAERS Safety Report 9170911 (Version 1)
Quarter: 2013Q1

REPORT INFORMATION
  Report Type: Spontaneous
  Country: TR (occurrence: TR)
  Receive Date: 20130319
  Receipt Date: 20130319
  Transmission Date: 20140127
  Serious: Yes (Hospitalization)
  Sender: FDA-Public Use
  Company Number: TR-BAYER-2013-029678

PATIENT
  Age: 41 Year
  Sex: Male

DRUGS (3)
  1. CIPROFLOXACIN [Suspect]
     Indication: PYREXIA
     Dosage: 500 MG, BID
     Route: 048
  2. MEROPENEM [Suspect]
     Route: 042
  3. OTHER ANALGESICS AND ANTIPYRETICS [Concomitant]
     Indication: PYREXIA

REACTIONS (2)
  - Endocarditis pseudomonal [Recovered/Resolved]
  - Drug resistance [None]
